FAERS Safety Report 4307458-7 (Version None)
Quarter: 2004Q1

REPORT INFORMATION
  Report Type: 
  Country: None (occurrence: None)
  Receive Date: 20040226
  Receipt Date: 20040212
  Transmission Date: 20041129
  Serious: Yes (Hospitalization, Other)
  Sender: FDA-Public Use
  Company Number: 2004008040

PATIENT
  Sex: Male

DRUGS (1)
  1. ZOXAN LP (DOXAZOSIN) [Suspect]
     Indication: BLADDER DISORDER
     Dosage: 4 MG

REACTIONS (2)
  - DRUG INEFFECTIVE [None]
  - EPISTAXIS [None]
